FAERS Safety Report 7770068-3 (Version None)
Quarter: 2011Q3

REPORT INFORMATION
  Report Type: 
  Country: None (occurrence: None)
  Receive Date: 20110922
  Receipt Date: 20110104
  Transmission Date: 20111222
  Serious: No
  Sender: FDA-Public Use
  Company Number: US-ASTRAZENECA-2011SE00754

PATIENT

DRUGS (1)
  1. SEROQUEL XR [Suspect]
     Indication: DEPRESSION
     Route: 048
     Dates: start: 20101101, end: 20110101

REACTIONS (3)
  - SEROTONIN SYNDROME [None]
  - PSYCHOMOTOR HYPERACTIVITY [None]
  - AGITATION [None]
